FAERS Safety Report 8582045-3 (Version None)
Quarter: 2012Q3

REPORT INFORMATION
  Report Type: 
  Country: None (occurrence: None)
  Receive Date: 20120809
  Receipt Date: 20120802
  Transmission Date: 20120928
  Serious: Yes (Other)
  Sender: FDA-Public Use
  Company Number: DE-PFIZER INC-2012188704

PATIENT
  Sex: Male

DRUGS (1)
  1. LYRICA [Suspect]
     Dosage: 1X 75MG IN THE MORNING AND 1X150MG IN THE EVENING

REACTIONS (11)
  - COGNITIVE DISORDER [None]
  - DIZZINESS [None]
  - MALAISE [None]
  - LACRIMAL DISORDER [None]
  - PALPITATIONS [None]
  - DRUG WITHDRAWAL SYNDROME [None]
  - ANXIETY [None]
  - EYE DISORDER [None]
  - LOSS OF CONSCIOUSNESS [None]
  - CIRCULATORY COLLAPSE [None]
  - BLOOD FOLATE DECREASED [None]
